FAERS Safety Report 7169532-X (Version None)
Quarter: 2010Q4

REPORT INFORMATION
  Report Type: 
  Country: None (occurrence: None)
  Receive Date: 20101217
  Receipt Date: 20101206
  Transmission Date: 20110411
  Serious: Yes (Other)
  Sender: FDA-Public Use
  Company Number: JP-CELGENEUS-087-21880-10120485

PATIENT
  Sex: Male
  Weight: 52 kg

DRUGS (2)
  1. REVLIMID [Suspect]
     Indication: MULTIPLE MYELOMA
     Route: 048
     Dates: start: 20100930, end: 20101008
  2. DEXART [Concomitant]
     Indication: MULTIPLE MYELOMA
     Route: 041
     Dates: start: 20100930, end: 20101018

REACTIONS (2)
  - HAEMORRHAGE [None]
  - NEUTROPENIA [None]
